FAERS Safety Report 10037603 (Version 1)
Quarter: 2014Q1

REPORT INFORMATION
  Report Type: Spontaneous
  Country: US (occurrence: None)
  Receive Date: 20140325
  Receipt Date: 20140325
  Transmission Date: 20141002
  Serious: Yes (Hospitalization)
  Sender: FDA-Public Use
  Company Number: None

PATIENT
  Age: 49 Year
  Sex: Female

DRUGS (2)
  1. OXCARBAZEPINE [Suspect]
     Indication: MOOD ALTERED
     Route: 048
     Dates: start: 20140123, end: 20140203
  2. OLANZAPINE [Concomitant]

REACTIONS (9)
  - Hemiparesis [None]
  - Balance disorder [None]
  - Dysarthria [None]
  - Muscle spasms [None]
  - Dizziness [None]
  - Fall [None]
  - Transient ischaemic attack [None]
  - Blood sodium decreased [None]
  - No therapeutic response [None]
